FAERS Safety Report 22139741 (Version 8)
Quarter: 2025Q1

REPORT INFORMATION
  Report Type: Spontaneous
  Country: PT (occurrence: PT)
  Receive Date: 20230327
  Receipt Date: 20250312
  Transmission Date: 20250408
  Serious: Yes (Life-Threatening, Hospitalization, Other)
  Sender: ORGANON
  Company Number: PT-GLAXOSMITHKLINE-PT2023EME036233

PATIENT
  Age: 42 Year
  Sex: Female
  Weight: 85 kg

DRUGS (7)
  1. LOSARTAN POTASSIUM [Suspect]
     Active Substance: LOSARTAN POTASSIUM
     Route: 048
  2. AMLODIPINE [Suspect]
     Active Substance: AMLODIPINE BESYLATE
     Route: 048
  3. CARVEDILOL [Suspect]
     Active Substance: CARVEDILOL
     Route: 048
  4. ETODOLAC [Suspect]
     Active Substance: ETODOLAC
     Route: 048
  5. ACEMETACIN [Suspect]
     Active Substance: ACEMETACIN
     Route: 048
  6. AMOXICILLIN [Suspect]
     Active Substance: AMOXICILLIN
  7. CLAVULANIC ACID [Suspect]
     Active Substance: CLAVULANIC ACID

REACTIONS (2)
  - Toxicity to various agents [Recovering/Resolving]
  - Intentional overdose [Recovering/Resolving]
